FAERS Safety Report 14509025 (Version 1)
Quarter: 2018Q1

REPORT INFORMATION
  Report Type: Spontaneous
  Country: US (occurrence: US)
  Receive Date: 20180207
  Receipt Date: 20180207
  Transmission Date: 20180509
  Serious: No
  Sender: FDA-Public Use
  Company Number: None

PATIENT
  Age: 69 Year
  Sex: Female

DRUGS (1)
  1. REPATHA [Suspect]
     Active Substance: EVOLOCUMAB
     Indication: ILL-DEFINED DISORDER
     Route: 058
     Dates: start: 20170725

REACTIONS (2)
  - Arthralgia [None]
  - Musculoskeletal pain [None]

NARRATIVE: CASE EVENT DATE: 20180203
